FAERS Safety Report 19610962 (Version 2)
Quarter: 2023Q1

REPORT INFORMATION
  Report Type: Spontaneous
  Country: US (occurrence: US)
  Receive Date: 20210726
  Receipt Date: 20230105
  Transmission Date: 20230418
  Serious: No
  Sender: FDA-Public Use
  Company Number: US-PFIZER INC-2021530678

PATIENT
  Age: 73 Year
  Sex: Female

DRUGS (2)
  1. IBRANCE [Suspect]
     Active Substance: PALBOCICLIB
     Dosage: 125 MG
     Dates: start: 20170920
  2. IBRANCE [Suspect]
     Active Substance: PALBOCICLIB
     Dosage: 125 MG
     Dates: start: 20180513

REACTIONS (6)
  - Dyspnoea [Unknown]
  - Oropharyngeal discomfort [Unknown]
  - Illness [Unknown]
  - Diarrhoea [Unknown]
  - Respiratory symptom [Unknown]
  - Fatigue [Unknown]
